FAERS Safety Report 8344369-4 (Version None)
Quarter: 2012Q2

REPORT INFORMATION
  Report Type: 
  Country: None (occurrence: None)
  Receive Date: 20120508
  Receipt Date: 20120504
  Transmission Date: 20120825
  Serious: Yes (Other)
  Sender: FDA-Public Use
  Company Number: PT-BAYER-2012-012850

PATIENT
  Age: 71 Year
  Sex: Female

DRUGS (14)
  1. IRON [Concomitant]
  2. BETASERON [Suspect]
     Dosage: 250 ?G, QOD
     Route: 058
     Dates: start: 20120214
  3. TERAZOSIN HCL [Suspect]
     Dosage: UNK
     Dates: start: 20111001, end: 20120203
  4. COAPROVEL [Concomitant]
  5. BETASERON [Suspect]
     Indication: SECONDARY PROGRESSIVE MULTIPLE SCLEROSIS
     Dosage: 250 MCG/ML, QOD
     Route: 058
     Dates: start: 19990301, end: 20120203
  6. DAFLON [DIOSMIN] [Concomitant]
  7. DAFLON [DIOSMIN,HESPERIDIN] [Concomitant]
  8. PRAVASTATIN [Concomitant]
  9. ZOLPIDEM [Concomitant]
  10. FURADANTIN [Concomitant]
  11. LEXOTAN [Concomitant]
  12. DITROPAN [Concomitant]
  13. TRENTAL [Concomitant]
  14. AMITRIPTYLINE HCL [Concomitant]

REACTIONS (5)
  - TREMOR [None]
  - THROMBOCYTOPENIA [None]
  - HYPOTHERMIA [None]
  - PANCYTOPENIA [None]
  - FATIGUE [None]
